FAERS Safety Report 10265401 (Version 1)
Quarter: 2014Q2

REPORT INFORMATION
  Report Type: Spontaneous
  Country: IT (occurrence: IT)
  Receive Date: 20140627
  Receipt Date: 20140627
  Transmission Date: 20141212
  Serious: Yes (Other)
  Sender: FDA-Public Use
  Company Number: IT-GE HEALTHCARE MEDICAL DIAGNOSTICS-VISP-PR-1406S-0288

PATIENT
  Age: 85 Year
  Sex: Male

DRUGS (2)
  1. VISIPAQUE [Suspect]
     Indication: BLADDER CANCER
     Route: 042
     Dates: start: 20140610, end: 20140610
  2. VISIPAQUE [Suspect]
     Indication: DIAGNOSTIC PROCEDURE

REACTIONS (2)
  - Swelling face [Recovering/Resolving]
  - Erythema [Recovering/Resolving]
